FAERS Safety Report 18394680 (Version 2)
Quarter: 2020Q4

REPORT INFORMATION
  Report Type: Report from Study
  Country: PK (occurrence: PK)
  Receive Date: 20201017
  Receipt Date: 20201027
  Transmission Date: 20210114
  Serious: No
  Sender: FDA-Public Use
  Company Number: NVSC2020PK279723

PATIENT
  Age: 29 Year
  Sex: Female

DRUGS (7)
  1. COSENTYX [Suspect]
     Active Substance: SECUKINUMAB
     Indication: PSORIASIS
     Dosage: 150 MG (VARIABLE)
     Route: 058
     Dates: start: 20181109
  2. COSENTYX [Suspect]
     Active Substance: SECUKINUMAB
     Dosage: 150 MG (VARIABLE)(2 INJECTIONS AT A GAP OF 3 MONTHS)
     Route: 058
     Dates: start: 201903
  3. COSENTYX [Suspect]
     Active Substance: SECUKINUMAB
     Dosage: 150 MG (1 INJECTION EVERY 5 MONTHS)
     Route: 058
     Dates: start: 201908
  4. COSENTYX [Suspect]
     Active Substance: SECUKINUMAB
     Dosage: 150 MG (1 INJECTION EVERY 2 TO 3MONTHS)
     Route: 058
     Dates: start: 202004
  5. COSENTYX [Suspect]
     Active Substance: SECUKINUMAB
     Dosage: 150 MG (1 INJECTION EVERY 5 MONTHS)
     Route: 058
     Dates: start: 202001
  6. COSENTYX [Suspect]
     Active Substance: SECUKINUMAB
     Dosage: 150 MG (1 INJECTION EVERY 2 TO 3MONTHS)
     Route: 058
     Dates: start: 202009
  7. COSENTYX [Suspect]
     Active Substance: SECUKINUMAB
     Dosage: 150 MG (1 INJECTION EVERY 2 TO 3MONTHS)
     Route: 058
     Dates: start: 202007

REACTIONS (2)
  - Inappropriate schedule of product administration [Unknown]
  - Incorrect dose administered [Not Recovered/Not Resolved]

NARRATIVE: CASE EVENT DATE: 20181109
